FAERS Safety Report 25354571 (Version 3)
Quarter: 2025Q2

REPORT INFORMATION
  Report Type: Report from Study
  Country: KR (occurrence: KR)
  Receive Date: 20250523
  Receipt Date: 20250605
  Transmission Date: 20250717
  Serious: Yes (Hospitalization)
  Sender: ABBVIE
  Company Number: KR-ABBVIE-6287242

PATIENT
  Age: 25 Year
  Sex: Male
  Weight: 61 kg

DRUGS (10)
  1. RINVOQ [Suspect]
     Active Substance: UPADACITINIB
     Indication: Axial spondyloarthritis
     Route: 048
     Dates: start: 20241126, end: 20250508
  2. RINVOQ [Suspect]
     Active Substance: UPADACITINIB
     Indication: Axial spondyloarthritis
     Route: 048
     Dates: start: 20250516
  3. RINVOQ [Suspect]
     Active Substance: UPADACITINIB
     Indication: Axial spondyloarthritis
     Route: 048
     Dates: start: 20241231, end: 20250414
  4. RINVOQ [Suspect]
     Active Substance: UPADACITINIB
     Indication: Axial spondyloarthritis
     Route: 048
     Dates: start: 20250422, end: 20250508
  5. Revak [Concomitant]
     Indication: Uveitis
     Dosage: UNIT DOSE : 1~2 DROP
     Route: 047
     Dates: start: 20240712
  6. URSODIOL [Concomitant]
     Active Substance: URSODIOL
     Indication: Alanine aminotransferase increased
     Route: 048
     Dates: start: 20241126
  7. Synatura [Concomitant]
     Indication: Prophylaxis
     Route: 048
     Dates: start: 20241224, end: 20250107
  8. Synatura [Concomitant]
     Indication: Prophylaxis
     Route: 048
     Dates: start: 20250512
  9. ZALTOPROFEN [Concomitant]
     Active Substance: ZALTOPROFEN
     Indication: Ankylosing spondylitis
     Dates: start: 20200309
  10. TEGOPRAZAN [Concomitant]
     Active Substance: TEGOPRAZAN
     Indication: Prophylaxis
     Route: 048
     Dates: start: 20250415, end: 20250422

REACTIONS (1)
  - Chronic tonsillitis [Recovering/Resolving]

NARRATIVE: CASE EVENT DATE: 20250301
